FAERS Safety Report 7372831-X (Version None)
Quarter: 2011Q1

REPORT INFORMATION
  Report Type: 
  Country: None (occurrence: None)
  Receive Date: 20110311
  Receipt Date: 20110228
  Transmission Date: 20110831
  Serious: Yes (Other)
  Sender: FDA-Public Use
  Company Number: 2010080719

PATIENT
  Age: 54 Year
  Sex: Female
  Weight: 72.6 kg

DRUGS (2)
  1. MORPHINE [Suspect]
  2. FRAGMIN [Suspect]
     Indication: THROMBOSIS PROPHYLAXIS
     Dosage: 5000 IU, 1XDAY,

REACTIONS (3)
  - PRODUCT QUALITY ISSUE [None]
  - VISUAL ACUITY REDUCED [None]
  - DRUG DOSE OMISSION [None]
